FAERS Safety Report 5697705-1 (Version None)
Quarter: 2008Q2

REPORT INFORMATION
  Report Type: 
  Country: None (occurrence: None)
  Receive Date: 20080408
  Receipt Date: 20080404
  Transmission Date: 20081010
  Serious: Yes (Other)
  Sender: FDA-Public Use
  Company Number: B0451976A

PATIENT
  Sex: Female

DRUGS (2)
  1. REQUIP [Suspect]
     Indication: PARKINSON'S DISEASE
     Route: 048
     Dates: start: 20060101, end: 20071001
  2. PERMAX [Concomitant]
     Indication: PARKINSON'S DISEASE
     Dosage: 1125MCG PER DAY
     Route: 048
     Dates: end: 20060101

REACTIONS (4)
  - BLOOD PRESSURE DECREASED [None]
  - BRADYKINESIA [None]
  - MALAISE [None]
  - SUDDEN ONSET OF SLEEP [None]
